FAERS Safety Report 24217478 (Version 1)
Quarter: 2024Q3

REPORT INFORMATION
  Report Type: Spontaneous
  Country: CN (occurrence: CN)
  Receive Date: 20240816
  Receipt Date: 20240816
  Transmission Date: 20241017
  Serious: Yes (Other)
  Sender: SANOFI AVENTIS
  Company Number: CN-SA-SAC20240814001048

PATIENT
  Age: 73 Year
  Sex: Female
  Weight: 36 kg

DRUGS (4)
  1. ELOXATIN [Suspect]
     Active Substance: OXALIPLATIN
     Indication: Gastric cancer
     Dosage: 100 MG, QD
     Route: 041
     Dates: start: 20240726, end: 20240726
  2. DOCETAXEL [Suspect]
     Active Substance: DOCETAXEL\DOCETAXEL ANHYDROUS
     Indication: Gastric cancer
     Dosage: 60 MG, QD
     Route: 041
     Dates: start: 20240726, end: 20240726
  3. FLUOROURACIL [Suspect]
     Active Substance: FLUOROURACIL
     Indication: Gastric cancer
     Dosage: 2.5 G, QD (PUMP INJECTION)
     Dates: start: 20240726, end: 20240726
  4. LEUCOVORIN CALCIUM [Suspect]
     Active Substance: LEUCOVORIN CALCIUM
     Indication: Gastric cancer
     Dosage: 300 MG, QD
     Route: 041
     Dates: start: 20240726, end: 20240726

REACTIONS (3)
  - Mouth ulceration [Recovering/Resolving]
  - White blood cell count decreased [Recovered/Resolved]
  - Granulocyte count decreased [Recovered/Resolved]

NARRATIVE: CASE EVENT DATE: 20240801
